FAERS Safety Report 11789390 (Version 1)
Quarter: 2015Q4

REPORT INFORMATION
  Report Type: Spontaneous
  Country: US (occurrence: None)
  Receive Date: 20151130
  Receipt Date: 20151130
  Transmission Date: 20160305
  Serious: Yes (Other)
  Sender: FDA-Public Use
  Company Number: None

PATIENT
  Age: 52 Year
  Sex: Female
  Weight: 65 kg

DRUGS (14)
  1. ALBUTEROL 0.083% NEB SOLN 2.5 MG [Concomitant]
  2. BISACODYL (DULCOLAX) [Concomitant]
  3. CEFEPIME (MAXIPIME) 1G IN 0.9% NACL 50ML [Concomitant]
  4. SODIUM PHOSPHATES (FLEET) [Concomitant]
  5. LIPITOR [Concomitant]
     Active Substance: ATORVASTATIN CALCIUM
  6. GLYCOPYRROLATE (ROBINUL) [Concomitant]
  7. KEPPRA [Concomitant]
     Active Substance: LEVETIRACETAM
  8. FAMOTIDINE (PEPCID) [Concomitant]
  9. POLYVINYL ALCOHOL (AKWA TEARS) [Concomitant]
  10. FECAL MICROBIOTA [Suspect]
     Active Substance: FECAL MICROBIOTA
     Indication: CLOSTRIDIUM DIFFICILE INFECTION
     Dosage: ONCE
     Route: 048
     Dates: start: 20151124, end: 20151124
  11. TOBRAMYCIN. [Concomitant]
     Active Substance: TOBRAMYCIN
  12. ARTIFICIAL TEARS (LUBRIFRESH P.M.) [Concomitant]
  13. CHLORHEXIDINE (PERIDEX, PERIOGARD) [Concomitant]
  14. MIDODRINE (PROAMATINE) [Concomitant]

REACTIONS (2)
  - White blood cell count abnormal [None]
  - Pyrexia [None]

NARRATIVE: CASE EVENT DATE: 20151124
